FAERS Safety Report 20708020 (Version 1)
Quarter: 2022Q2

REPORT INFORMATION
  Report Type: Spontaneous
  Country: AU (occurrence: AU)
  Receive Date: 20220414
  Receipt Date: 20220414
  Transmission Date: 20220721
  Serious: Yes (Other)
  Sender: FDA-Public Use
  Company Number: AU-CIPLA (EU) LIMITED-2022AU02357

PATIENT

DRUGS (5)
  1. ACETAMINOPHEN [Suspect]
     Active Substance: ACETAMINOPHEN
     Indication: Product used for unknown indication
     Dosage: 1 GRAM, PRN (TDS)
     Route: 065
  2. ALBUTEROL [Suspect]
     Active Substance: ALBUTEROL
     Indication: Product used for unknown indication
     Dosage: 100 MICROGRAM, UNK
  3. DEXAMETHASONE\FRAMYCETIN SULFATE\GRAMICIDIN [Suspect]
     Active Substance: DEXAMETHASONE\FRAMYCETIN SULFATE\GRAMICIDIN
     Indication: Product used for unknown indication
     Dosage: UNK
     Route: 065
  4. SULFASALAZINE [Suspect]
     Active Substance: SULFASALAZINE
     Indication: Product used for unknown indication
     Dosage: UNK
     Route: 065
     Dates: start: 202110, end: 202112
  5. SYMBICORT [Suspect]
     Active Substance: BUDESONIDE\FORMOTEROL FUMARATE DIHYDRATE
     Indication: Product used for unknown indication
     Dosage: UNK
     Route: 065

REACTIONS (16)
  - Sjogren^s syndrome [Unknown]
  - Pneumonia [Unknown]
  - Axial spondyloarthritis [Unknown]
  - Back pain [Unknown]
  - Blood creatine phosphokinase increased [Unknown]
  - C-reactive protein abnormal [Unknown]
  - Dry eye [Unknown]
  - Dry mouth [Unknown]
  - Epistaxis [Unknown]
  - HLA-B*27 positive [Unknown]
  - Inflammatory pain [Unknown]
  - Joint dislocation [Unknown]
  - Migraine with aura [Unknown]
  - Varicella [Unknown]
  - Rash [Unknown]
  - Sinusitis [Unknown]

NARRATIVE: CASE EVENT DATE: 20120101
